FAERS Safety Report 8830915 (Version 1)
Quarter: 2012Q4

REPORT INFORMATION
  Report Type: 
  Country: FR (occurrence: FR)
  Receive Date: 20121008
  Receipt Date: 20121008
  Transmission Date: 20130627
  Serious: Yes (Hospitalization)
  Sender: FDA-Public Use
  Company Number: FR-TEVA-361585ISR

PATIENT
  Age: 70 Year
  Sex: Male

DRUGS (3)
  1. OXALIPLATIN [Suspect]
     Indication: COLON CANCER
     Dosage: 1 Dosage forms Daily; 170 mg cyclical
     Route: 042
     Dates: start: 20110131, end: 20110131
  2. FLUOROURACILE WINTHROP [Concomitant]
     Indication: COLON CANCER
     Dosage: 1 Dosage forms Daily; 600 mg cyclical
     Route: 042
     Dates: start: 20101004
  3. LEVOFOLINATE DE CALCIUM NOT TEVA [Concomitant]
     Indication: COLON CANCER
     Dosage: 1 Dosage forms Daily; 200 mg cyclical
     Route: 042
     Dates: start: 20101004

REACTIONS (8)
  - Anaphylactic reaction [Recovered/Resolved]
  - Vasoplegia syndrome [Recovered/Resolved]
  - Malaise [Recovered/Resolved]
  - Loss of consciousness [Recovered/Resolved]
  - Hypotonia [Recovered/Resolved]
  - Urinary incontinence [Recovered/Resolved]
  - Hypotension [Recovered/Resolved]
  - Pruritus [Recovered/Resolved]
